FAERS Safety Report 24846923 (Version 4)
Quarter: 2025Q2

REPORT INFORMATION
  Report Type: Spontaneous
  Country: US (occurrence: US)
  Receive Date: 20250115
  Receipt Date: 20250514
  Transmission Date: 20250716
  Serious: No
  Sender: MERCK SHARP & DOHME LLC
  Company Number: US-009507513-2412USA009749

PATIENT
  Sex: Male

DRUGS (12)
  1. WINREVAIR [Suspect]
     Active Substance: SOTATERCEPT-CSRK
     Indication: Product used for unknown indication
     Route: 058
     Dates: start: 2024
  2. WINREVAIR [Suspect]
     Active Substance: SOTATERCEPT-CSRK
     Dosage: DOSE DESCRIPTION : 0.4 ML UNDER THE SKIN FOR 1 DOSE, THEN INCREASE TO 1 ML FOR TARGET DOSE, Q3W?D...
     Route: 058
     Dates: start: 2024
  3. WINREVAIR [Suspect]
     Active Substance: SOTATERCEPT-CSRK
     Dates: start: 202412
  4. WINREVAIR [Suspect]
     Active Substance: SOTATERCEPT-CSRK
  5. REMODULIN [Suspect]
     Active Substance: TREPROSTINIL
     Indication: Pulmonary arterial hypertension
     Route: 041
     Dates: start: 202406
  6. REMODULIN [Suspect]
     Active Substance: TREPROSTINIL
     Indication: Pulmonary arterial hypertension
     Route: 041
     Dates: start: 20240703
  7. REMODULIN [Suspect]
     Active Substance: TREPROSTINIL
     Indication: Pulmonary arterial hypertension
     Route: 041
     Dates: start: 202406
  8. REMODULIN [Suspect]
     Active Substance: TREPROSTINIL
     Indication: Pulmonary arterial hypertension
     Route: 058
  9. OPSUMIT [Suspect]
     Active Substance: MACITENTAN
  10. UPTRAVI [Suspect]
     Active Substance: SELEXIPAG
     Dosage: DOSE DESCRIPTION : 1200  G (1-800  G AND 2-200  G) BID?DAILY DOSE : 2400 MICROGRAM
  11. OPSUMIT [Concomitant]
     Active Substance: MACITENTAN
  12. TADALAFIL [Concomitant]
     Active Substance: TADALAFIL

REACTIONS (6)
  - Diarrhoea [Unknown]
  - Rash vesicular [Not Recovered/Not Resolved]
  - Dizziness [Unknown]
  - Erythema [Unknown]
  - Malaise [Unknown]
  - Rash pruritic [Recovering/Resolving]

NARRATIVE: CASE EVENT DATE: 20240101
